FAERS Safety Report 7460406-3 (Version None)
Quarter: 2011Q2

REPORT INFORMATION
  Report Type: 
  Country: None (occurrence: None)
  Receive Date: 20110505
  Receipt Date: 20110426
  Transmission Date: 20111010
  Serious: Yes (Hospitalization)
  Sender: FDA-Public Use
  Company Number: B0540940B

PATIENT
  Sex: Male
  Weight: 90 kg

DRUGS (20)
  1. ALLOPURINOL [Concomitant]
     Route: 048
     Dates: start: 20080505, end: 20080514
  2. FERRIC HYDROXIDE POLYMALTOSE COMPLEX [Concomitant]
     Route: 042
     Dates: start: 20080512, end: 20080514
  3. TRAMADOL [Concomitant]
     Indication: BONE PAIN
     Dates: start: 20080422
  4. NADROPARIN [Concomitant]
     Route: 058
     Dates: start: 20080422
  5. LENALIDOMIDE [Suspect]
     Indication: MULTIPLE MYELOMA
     Dosage: 10MG PER DAY
     Route: 048
     Dates: start: 20080506
  6. PREDNISONE [Suspect]
     Indication: MULTIPLE MYELOMA
     Dosage: 180MG PER DAY
     Route: 048
     Dates: start: 20080506, end: 20080509
  7. HYDROXYZINE [Concomitant]
     Indication: RASH
     Route: 048
     Dates: start: 20080522, end: 20080527
  8. CIPROFLOXACIN [Concomitant]
     Route: 048
     Dates: start: 20080514, end: 20080519
  9. ENALAPRIL [Concomitant]
     Indication: HYPERTENSION
     Route: 048
     Dates: start: 20040101
  10. AMLODIPINE [Concomitant]
     Indication: HYPERTENSION
     Dates: start: 20080424, end: 20080518
  11. BROMHEXINE [Concomitant]
     Indication: COUGH
     Route: 048
     Dates: start: 20080512, end: 20080519
  12. FLUCONAZOLE [Concomitant]
     Dosage: 200MG PER DAY
     Route: 042
     Dates: start: 20080524, end: 20080527
  13. INDAPAMIDE [Concomitant]
     Indication: HYPERTENSION
     Route: 048
     Dates: start: 20080410
  14. FLUCONAZOLE [Concomitant]
     Indication: CANDIDIASIS
     Dosage: 400MG TWICE PER DAY
     Dates: start: 20080522, end: 20080523
  15. MELPHALAN HYDROCHLORIDE [Suspect]
     Indication: MULTIPLE MYELOMA
     Dosage: 16MG PER DAY
     Route: 048
     Dates: start: 20080506, end: 20080509
  16. CIPROFLOXACIN [Concomitant]
     Indication: INFECTION PROPHYLAXIS
     Route: 042
     Dates: start: 20080512, end: 20080514
  17. METOPROLOL SUCCINATE [Concomitant]
     Indication: CORONARY ARTERY DISEASE
     Route: 048
     Dates: start: 20040101
  18. ASPIRIN [Concomitant]
     Route: 048
     Dates: start: 20040101
  19. TIANEPTINE [Concomitant]
     Indication: DEPRESSION
     Route: 048
     Dates: start: 20080512
  20. CETIRIZINE HCL [Concomitant]
     Indication: RASH
     Route: 048
     Dates: start: 20080523, end: 20080602

REACTIONS (2)
  - BRONCHITIS [None]
  - HERPES SIMPLEX [None]
